FAERS Safety Report 21615486 (Version 2)
Quarter: 2023Q1

REPORT INFORMATION
  Report Type: Spontaneous
  Country: US (occurrence: None)
  Receive Date: 20221118
  Receipt Date: 20230320
  Transmission Date: 20230418
  Serious: Yes (Hospitalization, Other)
  Sender: FDA-Public Use
  Company Number: 2022A375542

PATIENT
  Age: 961 Month
  Sex: Female
  Weight: 61.7 kg

DRUGS (26)
  1. PRILOSEC [Suspect]
     Active Substance: OMEPRAZOLE MAGNESIUM
     Indication: Gastrooesophageal reflux disease
     Dosage: JUN-2021 UNTIL AUG/SEP2021
     Route: 048
     Dates: start: 202106, end: 202109
  2. PRILOSEC [Suspect]
     Active Substance: OMEPRAZOLE MAGNESIUM
     Indication: Gastrooesophageal reflux disease
     Dosage: GENERIC
     Dates: start: 202106, end: 202109
  3. PRILOSEC [Suspect]
     Active Substance: OMEPRAZOLE MAGNESIUM
     Indication: Gastrooesophageal reflux disease
     Dosage: GENERIC
     Dates: start: 202106, end: 202108
  4. FAMOTIDINE [Suspect]
     Active Substance: FAMOTIDINE
     Dates: start: 202108
  5. TYLENOL [Concomitant]
     Active Substance: ACETAMINOPHEN
     Indication: Arthritis
  6. ASPIRIN [Concomitant]
     Active Substance: ASPIRIN
     Indication: Cardiac disorder
  7. VITAMIN D [Concomitant]
     Active Substance: VITAMIN D NOS
     Indication: Osteoporosis
  8. VITAMIN C [Concomitant]
     Active Substance: ASCORBIC ACID
     Indication: Immune system disorder
  9. CALCIUM [Concomitant]
     Active Substance: CALCIUM
     Indication: Bone disorder
  10. BIOTIN [Concomitant]
     Active Substance: BIOTIN
     Indication: Skin disorder
  11. BIOTIN [Concomitant]
     Active Substance: BIOTIN
     Indication: Hair disorder
  12. BIOTIN [Concomitant]
     Active Substance: BIOTIN
     Indication: Nail disorder
  13. ALPRAZOLAM [Concomitant]
     Active Substance: ALPRAZOLAM
  14. AZELASTINE [Concomitant]
     Active Substance: AZELASTINE
  15. FUROSEMIDE [Concomitant]
     Active Substance: FUROSEMIDE
  16. MIRTAZAPINE [Concomitant]
     Active Substance: MIRTAZAPINE
  17. MELATONIN [Concomitant]
     Active Substance: MELATONIN
  18. MULTIVITAL [Concomitant]
  19. ALENDRONATE [Concomitant]
     Active Substance: ALENDRONATE SODIUM
  20. PULMICORT FLEXHALER [Concomitant]
     Active Substance: BUDESONIDE
  21. CETIRIZINE HYDROCHLORIDE [Concomitant]
     Active Substance: CETIRIZINE HYDROCHLORIDE
  22. AZITHROMYCIN [Concomitant]
     Active Substance: AZITHROMYCIN
  23. CALCIUM GLUCONATE [Concomitant]
     Active Substance: CALCIUM GLUCONATE
  24. DOCUSATE [Concomitant]
     Active Substance: DOCUSATE
  25. ELIQUIS [Concomitant]
     Active Substance: APIXABAN
  26. ONDANSETRON [Concomitant]
     Active Substance: ONDANSETRON

REACTIONS (7)
  - Acute kidney injury [Not Recovered/Not Resolved]
  - Chronic kidney disease [Not Recovered/Not Resolved]
  - Tubulointerstitial nephritis [Not Recovered/Not Resolved]
  - Nephrogenic anaemia [Unknown]
  - Depression [Unknown]
  - Anxiety [Unknown]
  - Stress [Unknown]

NARRATIVE: CASE EVENT DATE: 20210801
